FAERS Safety Report 6260655-6 (Version None)
Quarter: 2009Q3

REPORT INFORMATION
  Report Type: 
  Country: None (occurrence: None)
  Receive Date: 20090708
  Receipt Date: 20090629
  Transmission Date: 20100115
  Serious: Yes (Hospitalization)
  Sender: FDA-Public Use
  Company Number: US-ABBOTT-08P-163-0466721-00

PATIENT
  Sex: Female
  Weight: 85.352 kg

DRUGS (9)
  1. HUMIRA [Suspect]
     Indication: PSORIASIS
     Route: 058
     Dates: start: 20050722
  2. TRIAMTERENE AND HYDROCHLOROTHIAZIDE [Concomitant]
     Indication: HYPERTENSION
     Dosage: 37.5/25 MG
     Dates: start: 20050201
  3. GLUCOSAMINE + CHONDROITIN [Concomitant]
     Indication: MEDICAL DIET
     Dates: start: 20040301
  4. TIMOLOL MALEATE [Concomitant]
     Indication: GLAUCOMA
     Dosage: 1 DROP EACH EYE
     Dates: start: 20040301
  5. BENAZEPRIL HYDROCHLORIDE [Concomitant]
     Indication: HYPERTENSION
     Dates: start: 20050315
  6. BENAZEPRIL HYDROCHLORIDE [Concomitant]
     Dates: start: 20050421
  7. CLONIDINE [Concomitant]
     Indication: BLOOD PRESSURE INCREASED
     Dates: start: 20060623
  8. CLONIDINE [Concomitant]
     Indication: HYPERTENSION
     Dosage: 1 1/2 TAB
     Dates: start: 20060801
  9. PLENDIL [Concomitant]
     Indication: HYPERTENSION
     Dates: start: 20061117

REACTIONS (2)
  - ACUTE MYOCARDIAL INFARCTION [None]
  - PNEUMONIA [None]
